FAERS Safety Report 10431306 (Version 1)
Quarter: 2014Q3

REPORT INFORMATION
  Report Type: Spontaneous
  Country: US (occurrence: None)
  Receive Date: 20140815
  Receipt Date: 20140815
  Transmission Date: 20150326
  Serious: No
  Sender: FDA-Public Use
  Company Number: US-2014-10732

PATIENT
  Sex: Male

DRUGS (1)
  1. ABILIFY MAINTENA [Suspect]
     Active Substance: ARIPIPRAZOLE

REACTIONS (2)
  - Psychiatric decompensation [None]
  - Psychotic disorder [None]

NARRATIVE: CASE EVENT DATE: 201403
